FAERS Safety Report 9466727 (Version 1)
Quarter: 2013Q3

REPORT INFORMATION
  Report Type: Spontaneous
  Country: US (occurrence: US)
  Receive Date: 20130820
  Receipt Date: 20130820
  Transmission Date: 20140515
  Serious: No
  Sender: FDA-Public Use
  Company Number: US-TEVA-395751USA

PATIENT
  Sex: Female

DRUGS (1)
  1. FLUCONAZOLE [Suspect]
     Indication: FUNGAL INFECTION
     Route: 048

REACTIONS (5)
  - Gastrointestinal disorder [Unknown]
  - Abdominal pain [Unknown]
  - Chills [Unknown]
  - Nausea [Unknown]
  - Infection parasitic [Unknown]
